FAERS Safety Report 9836781 (Version 1)
Quarter: 2013Q4

REPORT INFORMATION
  Report Type: Spontaneous
  Country: US (occurrence: None)
  Receive Date: 20131120
  Receipt Date: 20131120
  Transmission Date: 20140711
  Serious: No
  Sender: FDA-Public Use
  Company Number: 1000047282

PATIENT
  Age: 69 Year
  Sex: Male

DRUGS (3)
  1. VIIBRYD [Suspect]
     Indication: DEPRESSION
     Dosage: 10MG, (10MG, 1 IN 1D) ORAL
     Route: 048
     Dates: start: 20130723
  2. CLONAZEPAM (CLONAZEPAM) (CLONAZEPAM) [Concomitant]
  3. RISPERIDONE (RISPERIDONE) (RISPERIDONE [Concomitant]

REACTIONS (1)
  - Diarrhoea [None]
